FAERS Safety Report 5604370-8 (Version None)
Quarter: 2008Q1

REPORT INFORMATION
  Report Type: 
  Country: None (occurrence: None)
  Receive Date: 20080128
  Receipt Date: 20080114
  Transmission Date: 20080703
  Serious: Yes (Other)
  Sender: FDA-Public Use
  Company Number: US-ELI_LILLY_AND_COMPANY-US200801002942

PATIENT
  Age: 33 Year
  Sex: Female

DRUGS (7)
  1. CYMBALTA [Suspect]
     Indication: PAIN
     Dosage: 90 MG, UNK
     Dates: start: 20070801, end: 20080108
  2. DEPAKOTE [Concomitant]
     Dosage: 1000 MG, UNK
  3. SEROQUEL [Concomitant]
     Dosage: 1000 MG, UNK, AS REPORTED
  4. ULTRAM [Concomitant]
  5. LODINE [Concomitant]
  6. OXYCONTIN [Concomitant]
     Dosage: 300 MG, UNK
  7. LYRICA [Concomitant]

REACTIONS (1)
  - BLOOD CREATINE PHOSPHOKINASE [None]
